FAERS Safety Report 8368908-2 (Version None)
Quarter: 2012Q2

REPORT INFORMATION
  Report Type: 
  Country: None (occurrence: None)
  Receive Date: 20120516
  Receipt Date: 20120507
  Transmission Date: 20120825
  Serious: Yes (Other)
  Sender: FDA-Public Use
  Company Number: GER/GER/12/0024240

PATIENT
  Age: 33 Year
  Sex: Female
  Weight: 68 kg

DRUGS (4)
  1. LAMOTRIGINE [Suspect]
     Indication: EPILEPSY
     Dosage: 325 MG, 125-0-200, ORAL
     Route: 048
     Dates: start: 20100224, end: 20100712
  2. HYDROCORTONE [Concomitant]
  3. DEXAMETHASONE [Concomitant]
  4. ASTONIN-H (FLUDROCORTISONE) [Concomitant]

REACTIONS (5)
  - VAGINAL HAEMORRHAGE [None]
  - MATERNAL EXPOSURE DURING PREGNANCY [None]
  - GASTROINTESTINAL INFECTION [None]
  - ABORTION INDUCED [None]
  - BLOOD POTASSIUM DECREASED [None]
